FAERS Safety Report 13593115 (Version 3)
Quarter: 2018Q1

REPORT INFORMATION
  Report Type: Report from Study
  Country: CN (occurrence: CN)
  Receive Date: 20170530
  Receipt Date: 20180131
  Transmission Date: 20180508
  Serious: Yes (Death)
  Sender: FDA-Public Use
  Company Number: CN-TAKEDA-2017MPI004791

PATIENT
  Age: 84 Year
  Sex: Male
  Weight: 65 kg

DRUGS (4)
  1. DEXAMETHASONE. [Suspect]
     Active Substance: DEXAMETHASONE
     Indication: PLASMA CELL MYELOMA
     Dosage: UNK
     Route: 048
  2. OMEPRAZOLE                         /00661202/ [Concomitant]
     Active Substance: OMEPRAZOLE SODIUM
     Dosage: 20 MG, UNK
     Route: 048
  3. VELCADE [Suspect]
     Active Substance: BORTEZOMIB
     Indication: PLASMA CELL MYELOMA
     Dosage: 1.3 MG/M2, QD
     Route: 058
     Dates: start: 20170428
  4. AMLODIPINE BESYLATE. [Concomitant]
     Active Substance: AMLODIPINE BESYLATE
     Indication: HYPERTENSION
     Dosage: UNK UNK, QD
     Route: 048
     Dates: start: 20170427

REACTIONS (1)
  - Lung infection [Fatal]

NARRATIVE: CASE EVENT DATE: 20170519
